FAERS Safety Report 4918153-5 (Version None)
Quarter: 2006Q1

REPORT INFORMATION
  Report Type: 
  Country: None (occurrence: None)
  Receive Date: 20060215
  Receipt Date: 20060206
  Transmission Date: 20060701
  Serious: Yes (Life-Threatening)
  Sender: FDA-Public Use
  Company Number: 2006-02-0227

PATIENT
  Age: 86 Year
  Sex: Female

DRUGS (4)
  1. CLARITIN [Suspect]
     Indication: PRURITUS
     Dosage: 10 MG ORAL
     Route: 048
     Dates: start: 20051115, end: 20051213
  2. ALLOPURINOL [Suspect]
     Dosage: ORAL
     Route: 048
  3. OLMETEC (OLMESARTAN MEDOXOMIL) TABLETS [Suspect]
     Dosage: ORAL
     Route: 048
  4. NORVASC [Concomitant]

REACTIONS (2)
  - GASTROINTESTINAL HAEMORRHAGE [None]
  - PLATELET COUNT DECREASED [None]
